FAERS Safety Report 18997836 (Version 1)
Quarter: 2021Q1

REPORT INFORMATION
  Report Type: Spontaneous
  Country: US (occurrence: US)
  Receive Date: 20210311
  Receipt Date: 20210311
  Transmission Date: 20210420
  Serious: No
  Sender: FDA-Public Use
  Company Number: US-IPSEN BIOPHARMACEUTICALS, INC.-2021-04393

PATIENT
  Age: 65 Year
  Sex: Female

DRUGS (4)
  1. DYSPORT [Suspect]
     Active Substance: ABOBOTULINUMTOXINA
     Indication: SKIN WRINKLING
  2. DYSPORT [Suspect]
     Active Substance: ABOBOTULINUMTOXINA
     Indication: SKIN WRINKLING
  3. DYSPORT [Suspect]
     Active Substance: ABOBOTULINUMTOXINA
     Indication: SKIN WRINKLING
     Dosage: 30 IU FRONTALIS, 18 IU CORRUGATOR, 9 IU PROCERUS, 24 IU CROW^S FEET, 6 IU DAO,12 MENTALIS
     Route: 065
     Dates: start: 20201029, end: 20201029
  4. DYSPORT [Suspect]
     Active Substance: ABOBOTULINUMTOXINA
     Indication: OFF LABEL USE

REACTIONS (4)
  - Off label use [Unknown]
  - Off label use [Unknown]
  - Eyelid ptosis [Recovered/Resolved]
  - Brow ptosis [Recovered/Resolved]

NARRATIVE: CASE EVENT DATE: 20201029
